FAERS Safety Report 13999014 (Version 1)
Quarter: 2017Q3

REPORT INFORMATION
  Report Type: Spontaneous
  Country: US (occurrence: US)
  Receive Date: 20170922
  Receipt Date: 20170922
  Transmission Date: 20171128
  Serious: Yes (Other)
  Sender: FDA-Public Use
  Company Number: US-CIPLA LTD.-2017US10674

PATIENT

DRUGS (4)
  1. BUPROPION HYDROCHLORIDE XL [Suspect]
     Active Substance: BUPROPION HYDROCHLORIDE
     Dosage: UNK, 300+150MG
     Route: 065
  2. BUPROPION HYDROCHLORIDE XL [Suspect]
     Active Substance: BUPROPION HYDROCHLORIDE
     Indication: DEPRESSION
     Dosage: UNK,TEN PLUS YEARS (UNKNOWN MANUFACTURER)
     Route: 065
  3. BUPROPION HYDROCHLORIDE XL [Suspect]
     Active Substance: BUPROPION HYDROCHLORIDE
     Dosage: UNK, DOSE INCREASED
     Route: 065
  4. BUPROPION HYDROCHLORIDE XL [Suspect]
     Active Substance: BUPROPION HYDROCHLORIDE
     Dosage: UNK, CIPLA
     Route: 065

REACTIONS (5)
  - Anxiety [Not Recovered/Not Resolved]
  - Product substitution issue [Unknown]
  - Depression [Not Recovered/Not Resolved]
  - Drug ineffective [Unknown]
  - Disturbance in attention [Not Recovered/Not Resolved]
